FAERS Safety Report 25548553 (Version 1)
Quarter: 2025Q3

REPORT INFORMATION
  Report Type: Spontaneous
  Country: US (occurrence: None)
  Receive Date: 20250712
  Receipt Date: 20250712
  Transmission Date: 20251020
  Serious: Yes (Life-Threatening, Hospitalization)
  Sender: FDA-CTU
  Company Number: None

PATIENT
  Age: 74 Year
  Sex: Male

DRUGS (1)
  1. IVERMECTIN [Suspect]
     Active Substance: IVERMECTIN
     Indication: Performance enhancing product use
     Dates: start: 20250415, end: 20250701

REACTIONS (6)
  - Self-medication [None]
  - Seizure [None]
  - Amnesia [None]
  - Confusional state [None]
  - Disorientation [None]
  - Neurotoxicity [None]

NARRATIVE: CASE EVENT DATE: 20250705
